FAERS Safety Report 12325740 (Version 2)
Quarter: 2016Q3

REPORT INFORMATION
  Report Type: Spontaneous
  Country: US (occurrence: US)
  Receive Date: 20160503
  Receipt Date: 20160902
  Transmission Date: 20161109
  Serious: No
  Sender: FDA-Public Use
  Company Number: US-LEO PHARMA-241693

PATIENT
  Age: 63 Year
  Sex: Female

DRUGS (2)
  1. CALCIPOTRIENE OINTMENT 0.005% [Concomitant]
     Active Substance: CALCIPOTRIENE
     Indication: PSORIASIS
  2. DAIVOBET [Suspect]
     Active Substance: BETAMETHASONE DIPROPIONATE\CALCIPOTRIENE
     Indication: PSORIASIS
     Route: 061
     Dates: start: 20160216

REACTIONS (3)
  - Dry skin [Not Recovered/Not Resolved]
  - Application site nodule [Not Recovered/Not Resolved]
  - Medication error [Unknown]

NARRATIVE: CASE EVENT DATE: 20160329
